FAERS Safety Report 25889359 (Version 2)
Quarter: 2025Q4

REPORT INFORMATION
  Report Type: Spontaneous
  Country: CL (occurrence: CL)
  Receive Date: 20251007
  Receipt Date: 20251103
  Transmission Date: 20260118
  Serious: Yes (Death)
  Sender: AVERITAS
  Company Number: CL-GRUNENTHAL-2025-123126

PATIENT
  Age: 67 Year
  Sex: Female

DRUGS (2)
  1. QUTENZA [Suspect]
     Active Substance: CAPSAICIN
     Indication: Neuralgia
     Dosage: 2 DOSAGE FORM, ONCE
     Route: 003
  2. QUTENZA [Suspect]
     Active Substance: CAPSAICIN
     Dosage: 3 DOSAGE FORM, ONCE
     Route: 003

REACTIONS (2)
  - Malignant neoplasm progression [Fatal]
  - Allodynia [Unknown]
